FAERS Safety Report 16790466 (Version 1)
Quarter: 2019Q3

REPORT INFORMATION
  Report Type: Spontaneous
  Country: US (occurrence: US)
  Receive Date: 20190718
  Receipt Date: 20190718
  Transmission Date: 20191005
  Serious: Yes (Other)
  Sender: FDA-Public Use
  Company Number: None

PATIENT
  Age: 23 Year
  Sex: Male
  Weight: 53.1 kg

DRUGS (6)
  1. PHENOBARBITAL (PHENOBARBITAL) ORAL SOLUTION, 20/5 MG/ML [Suspect]
     Active Substance: PHENOBARBITAL
     Indication: SEIZURE
     Dosage: ?          OTHER FREQUENCY:1X/DAY ^AM^;OTHER ROUTE:G-TUBE?
     Dates: start: 1998, end: 20190620
  2. PHENOBARBITAL ORAL SOLUTION (BIORAMO) (PHENOBARBITAL ORAL SOLUTION (BIORAMO)) [Suspect]
     Active Substance: PHENOBARBITAL
     Indication: SEIZURE
     Dosage: ?          OTHER FREQUENCY:1X/DAY ^PM^;OTHER ROUTE:G-TUBE?
     Dates: start: 1998, end: 20190620
  3. RANITIDINE. [Concomitant]
     Active Substance: RANITIDINE
  4. DIAZEPAM (DIAZEPAM) [Concomitant]
     Active Substance: DIAZEPAM
  5. LAMICTAL [Concomitant]
     Active Substance: LAMOTRIGINE
  6. MIRALAX [Concomitant]
     Active Substance: POLYETHYLENE GLYCOL 3350

REACTIONS (5)
  - Staphylococcal infection [None]
  - Acne [None]
  - Ulcer haemorrhage [None]
  - Seizure [None]
  - Communication disorder [None]

NARRATIVE: CASE EVENT DATE: 2019
